FAERS Safety Report 6357368-9 (Version None)
Quarter: 2009Q3

REPORT INFORMATION
  Report Type: 
  Country: None (occurrence: None)
  Receive Date: 20090916
  Receipt Date: 20090908
  Transmission Date: 20100115
  Serious: Yes (Hospitalization, Other)
  Sender: FDA-Public Use
  Company Number: US-ASTRAZENECA-2009UW13296

PATIENT
  Age: 43 Year
  Sex: Male
  Weight: 119.7 kg

DRUGS (6)
  1. SEROQUEL [Suspect]
     Indication: PSYCHOTIC DISORDER
     Route: 048
     Dates: start: 20030101, end: 20041201
  2. RISPERDAL [Concomitant]
     Indication: PSYCHOTIC DISORDER
     Dates: start: 20030901, end: 20031008
  3. RISPERDAL [Concomitant]
     Dates: start: 20050208, end: 20050519
  4. ZYPREXA [Concomitant]
     Indication: PSYCHOTIC DISORDER
     Dates: start: 20031022, end: 20031128
  5. ABILIFY [Concomitant]
     Dates: start: 20030101, end: 20030723
  6. HALDOL [Concomitant]
     Dates: start: 20030901

REACTIONS (10)
  - BLOOD CHOLESTEROL INCREASED [None]
  - BLOOD TRIGLYCERIDES INCREASED [None]
  - DIABETIC COMA [None]
  - DIABETIC KETOACIDOSIS [None]
  - HYPERLIPIDAEMIA [None]
  - PANCREATITIS [None]
  - RENAL CANCER [None]
  - RENAL FAILURE [None]
  - TARDIVE DYSKINESIA [None]
  - TYPE 2 DIABETES MELLITUS [None]
